FAERS Safety Report 10726306 (Version 1)
Quarter: 2015Q1

REPORT INFORMATION
  Report Type: Spontaneous
  Country: US (occurrence: US)
  Receive Date: 20150121
  Receipt Date: 20150121
  Transmission Date: 20150721
  Serious: No
  Sender: FDA-Public Use
  Company Number: US-DURATA THERAPEUTICS INTERNATIONAL-US-DUR-14-000203

PATIENT
  Age: 88 Year
  Sex: Male
  Weight: 60.38 kg

DRUGS (3)
  1. DALVANCE [Suspect]
     Active Substance: DALBAVANCIN
     Indication: LOCALISED INFECTION
     Route: 041
     Dates: start: 201410, end: 201410
  2. ANTIBIOTICS [Concomitant]
     Active Substance: UNSPECIFIED INGREDIENT
     Indication: LOCALISED INFECTION
  3. DALVANCE [Suspect]
     Active Substance: DALBAVANCIN
     Route: 041
     Dates: start: 20141103, end: 20141103

REACTIONS (4)
  - Rash [Unknown]
  - Pruritus [Unknown]
  - Skin sensitisation [Unknown]
  - Incorrect drug administration duration [Unknown]

NARRATIVE: CASE EVENT DATE: 201410
